FAERS Safety Report 10306188 (Version 5)
Quarter: 2014Q4

REPORT INFORMATION
  Report Type: Spontaneous
  Country: JP (occurrence: JP)
  Receive Date: 20140715
  Receipt Date: 20141010
  Transmission Date: 20150528
  Serious: Yes (Hospitalization, Other)
  Sender: FDA-Public Use
  Company Number: JP-009507513-1407JPN006383

PATIENT
  Age: 48 Year
  Sex: Female

DRUGS (2)
  1. TOREMIFENE CITRATE [Suspect]
     Active Substance: TOREMIFENE CITRATE
     Indication: BREAST CANCER
     Dosage: 40 MG, DAILY
     Route: 048
     Dates: start: 200304, end: 200306
  2. TOREMIFENE CITRATE [Suspect]
     Active Substance: TOREMIFENE CITRATE
     Dosage: 40 MG, QD
     Route: 048
     Dates: start: 200310

REACTIONS (1)
  - Endometrial adenocarcinoma [Recovering/Resolving]

NARRATIVE: CASE EVENT DATE: 200305
